FAERS Safety Report 8624187-X (Version None)
Quarter: 2012Q3

REPORT INFORMATION
  Report Type: 
  Country: None (occurrence: None)
  Receive Date: 20120827
  Receipt Date: 20120521
  Transmission Date: 20120928
  Serious: No
  Sender: FDA-Public Use
  Company Number: US-VERTEX PHARMACEUTICALS INC.-AE-2012-007444

PATIENT

DRUGS (1)
  1. KALYDECO [Suspect]
     Indication: CYSTIC FIBROSIS
     Route: 048

REACTIONS (5)
  - FALSE NEGATIVE INVESTIGATION RESULT [None]
  - HYPERSENSITIVITY [None]
  - INFLAMMATION [None]
  - DIABETES MELLITUS INADEQUATE CONTROL [None]
  - DEHYDRATION [None]
